FAERS Safety Report 17231534 (Version 4)
Quarter: 2020Q4

REPORT INFORMATION
  Report Type: Spontaneous
  Country: US (occurrence: US)
  Receive Date: 20200103
  Receipt Date: 20201228
  Transmission Date: 20210113
  Serious: No
  Sender: FDA-Public Use
  Company Number: US-PFIZER INC-2019562238

PATIENT
  Age: 69 Year
  Sex: Male
  Weight: 79 kg

DRUGS (36)
  1. GABAPENTIN. [Concomitant]
     Active Substance: GABAPENTIN
     Indication: RESTLESS LEGS SYNDROME
  2. LUNESTA [Concomitant]
     Active Substance: ESZOPICLONE
     Indication: INSOMNIA
     Dosage: 2 MG, 1X/DAY (EVENING)
  3. TRIAMCINOLONE ACETONIDE. [Concomitant]
     Active Substance: TRIAMCINOLONE ACETONIDE
     Indication: DERMATITIS CONTACT
     Dosage: 0.1 %, AS NEEDED (QTY/ MO.: 1 TUBE PER YR/FREQUENCY:  2-3 APPLICATION/DAY AS NEEDED)
  4. GLYCERINE [Concomitant]
     Active Substance: GLYCERIN
     Dosage: UNK, AS NEEDED (1-2 TIMES/DAY PRN (AS NEEDED)) (STRENGTH: 2 RS)
  5. FIORICET WITH CODEINE [Concomitant]
     Active Substance: ACETAMINOPHEN\BUTALBITAL\CAFFEINE\CODEINE PHOSPHATE
     Indication: HEADACHE
  6. GABAPENTIN. [Concomitant]
     Active Substance: GABAPENTIN
     Indication: WITHDRAWAL SYNDROME
     Dosage: 300 MG, 2X/DAY (BID) (MORNING EVENING)
  7. PRISTIQ EXTENDED-RELEASE [Suspect]
     Active Substance: DESVENLAFAXINE SUCCINATE
     Dosage: 50 MG, 1X/DAY (MORNING )
  8. GABAPENTIN. [Concomitant]
     Active Substance: GABAPENTIN
     Indication: HEADACHE
  9. MIRAPEX [Concomitant]
     Active Substance: PRAMIPEXOLE DIHYDROCHLORIDE
     Indication: RESTLESS LEGS SYNDROME
     Dosage: 0.5 MG, 2X/DAY (MORNING EVENING)
  10. BUPROPION HCL ER [Concomitant]
     Active Substance: BUPROPION HYDROCHLORIDE
     Dosage: 300 MG, 1X/DAY
  11. ATORVASTATIN [Concomitant]
     Active Substance: ATORVASTATIN
     Indication: BLOOD CHOLESTEROL
     Dosage: 40 MG, 1X/DAY
  12. BOTOX [Concomitant]
     Active Substance: ONABOTULINUMTOXINA
     Indication: HEADACHE
     Dosage: UNK (INJECTION EVERY THREE MONTHS)
  13. ROBAXIN [Concomitant]
     Active Substance: METHOCARBAMOL
     Indication: ARTHRALGIA
     Dosage: 750 MG, 2X/DAY (BID) (MORNING EVENING)
  14. ROBAXIN [Concomitant]
     Active Substance: METHOCARBAMOL
     Indication: NECK PAIN
  15. TESTOSTERONE CYPIONATE. [Concomitant]
     Active Substance: TESTOSTERONE CYPIONATE
     Dosage: UNK, WEEKLY (QTY/ MO.: 4/MO/FREQUENCY:  Q TUESDAY/TIME OF DAY TAKEN: UNDEFINED)
  16. DICLOFENAC SODIUM. [Concomitant]
     Active Substance: DICLOFENAC SODIUM
     Indication: HEADACHE
     Dosage: 50 MG, AS NEEDED
  17. PRISTIQ EXTENDED-RELEASE [Suspect]
     Active Substance: DESVENLAFAXINE SUCCINATE
     Indication: DEPRESSION
     Dosage: UNK
  18. FIORICET WITH CODEINE [Concomitant]
     Active Substance: ACETAMINOPHEN\BUTALBITAL\CAFFEINE\CODEINE PHOSPHATE
     Indication: MIGRAINE
     Dosage: UNK, AS NEEDED (PRN) AT LEAST 6 HRS APART)
  19. IBUPROFEN. [Concomitant]
     Active Substance: IBUPROFEN
     Indication: MIGRAINE
     Dosage: UNK (QTY/ MO.: PRN (AS NEEDED)/FREQUENCY:  NOTE: FOR MIGRAINE: 2 IBUPROFEN + 1 BENADRYL )
  20. ASPIRIN [ACETYLSALICYLIC ACID] [Concomitant]
     Active Substance: ASPIRIN
     Dosage: 81 MG, 1X/DAY (EVENING)
  21. PANTOPRAZOLE SODIUM. [Concomitant]
     Active Substance: PANTOPRAZOLE SODIUM
     Dosage: 40 MG, ALTERNATE DAY (40MG EVERY OTHER DAY) (ON ALTERNATE DAYS, HE TAKES PEPCID)
  22. PROPRANOLOL HCL [Concomitant]
     Active Substance: PROPRANOLOL HYDROCHLORIDE
     Indication: TENSION
     Dosage: 80 MG, 2X/DAY
  23. ROBAXIN [Concomitant]
     Active Substance: METHOCARBAMOL
     Indication: HEADACHE
  24. WELLBUTRIN [Concomitant]
     Active Substance: BUPROPION HYDROCHLORIDE
     Indication: DEPRESSION
     Dosage: 300 MG, 1X/DAY (MORNING)
  25. TESTOSTERONE CYPIONATE. [Concomitant]
     Active Substance: TESTOSTERONE CYPIONATE
     Dosage: 0.35 ML, WEEKLY
  26. PANTOPRAZOLE SODIUM. [Concomitant]
     Active Substance: PANTOPRAZOLE SODIUM
     Indication: GASTROOESOPHAGEAL REFLUX DISEASE
     Dosage: 40 MG, ( (FREQUENCY: Q3DAY/TIME OF DAY TAKEN: EVENING)) (I TAKE ONE ABOUT EVERY THIRD DAY)
  27. PROPRANOLOL HCL [Concomitant]
     Active Substance: PROPRANOLOL HYDROCHLORIDE
     Indication: HEADACHE
     Dosage: 40 MG, 2X/DAY (STRENGTH: 20 MG/FREQUENCY: B.I.D (TWO TIMES A DAY) (40 MG EACH)/MORNING EVENING)
  28. PRISTIQ EXTENDED-RELEASE [Suspect]
     Active Substance: DESVENLAFAXINE SUCCINATE
     Dosage: 100 MG, 1X/DAY (ONCE DAY IN MORNING BY MOUTH)
     Route: 048
     Dates: start: 20191219
  29. PRISTIQ EXTENDED-RELEASE [Suspect]
     Active Substance: DESVENLAFAXINE SUCCINATE
     Dosage: 100 MG, 1X/DAY (100 MG, TABLET, BY MOUTH, ONCE DAILY (IN THE MORNING))
     Route: 048
     Dates: start: 20191225
  30. GABAPENTIN. [Concomitant]
     Active Substance: GABAPENTIN
     Indication: NEURALGIA
  31. BENADRYL [Concomitant]
     Active Substance: DIPHENHYDRAMINE HYDROCHLORIDE
     Indication: MIGRAINE
     Dosage: UNK (QTY/ MO.: PRN (AS NEEDED)/FREQUENCY:  NOTE: FOR MIGRAINE: 2 IBUPROFEN + 1 BENADRYL )
  32. LIPITOR [Concomitant]
     Active Substance: ATORVASTATIN CALCIUM
     Dosage: 40 MG, 1X/DAY (EVENING)
  33. MELATONIN [Concomitant]
     Active Substance: MELATONIN
     Dosage: 5 MG, 1X/DAY (FREQUENCY: QHS (AT BED TIME)/TIME OF DAY TAKEN: EVENING)
  34. PROPRANOLOL HCL [Concomitant]
     Active Substance: PROPRANOLOL HYDROCHLORIDE
     Indication: MIGRAINE
  35. VENLAFAXINE [Concomitant]
     Active Substance: VENLAFAXINE HYDROCHLORIDE
     Dosage: 100 MG, 1X/DAY
  36. PEPCID [ALUMINIUM HYDROXIDE GEL, DRIED;MAGNESIUM CARBONATE] [Concomitant]
     Active Substance: ALUMINUM HYDROXIDE\MAGNESIUM CARBONATE
     Dosage: UNK, ALTERNATE DAY (ON ALTERNATE DAYS, HE TAKES PEPCID)

REACTIONS (3)
  - Product dose omission issue [Unknown]
  - Memory impairment [Unknown]
  - Bronchitis [Recovered/Resolved]

NARRATIVE: CASE EVENT DATE: 20191201
